FAERS Safety Report 7580282 (Version 10)
Quarter: 2014Q1

REPORT INFORMATION
  Report Type: Spontaneous
  Country: US (occurrence: US)
  Receive Date: 20100910
  Receipt Date: 20140228
  Transmission Date: 20141002
  Serious: Yes (Hospitalization, Congenital Anomaly, Other)
  Sender: FDA-Public Use
  Company Number: US-PFIZER INC-2010109641

PATIENT
  Sex: Female
  Weight: 3 kg

DRUGS (23)
  1. ZOLOFT [Suspect]
     Indication: ANXIETY
     Dosage: 100 MG, 1X/DAY
     Route: 064
  2. ZOLOFT [Suspect]
     Indication: DEPRESSION
     Dosage: UNK, 1X/DAY
     Route: 064
     Dates: start: 2003, end: 2008
  3. VITAMIN B12 [Concomitant]
     Dosage: UNK
     Route: 064
  4. ACETAMINOPHEN [Concomitant]
     Dosage: 325 MG, 1 TO 2 TABLETS EVERY 4 HRS
     Route: 064
  5. FERROUS FUMARATE [Concomitant]
     Dosage: UNK
     Route: 064
  6. FOLIC ACID [Concomitant]
     Dosage: UNK
     Route: 064
  7. PRENATAL VITAMINS [Concomitant]
     Indication: PREGNANCY
     Dosage: ONE TABLET, 1X/DAY
     Route: 064
     Dates: start: 2005
  8. ACYCLOVIR [Concomitant]
     Indication: ORAL HERPES
     Dosage: 200 MG, 2 CAPSULES THREE TIMES A DAY
     Route: 064
  9. ACYCLOVIR [Concomitant]
     Indication: ORAL HERPES
  10. ACYCLOVIR [Concomitant]
     Indication: PROPHYLAXIS
     Dosage: 800 MG, 1 TABLET EVERY DAY
     Route: 064
  11. SERTRALINE [Concomitant]
     Dosage: 100 MG, 1 TABLET EVERY DAY
     Route: 064
  12. LIQUIFILM TEARS [Concomitant]
     Indication: DRY EYE
     Dosage: 1 DROP IN BOTH EYES, FOUR TIMES A DAY AS NEEDED
     Route: 064
  13. HYDROCORTISONE [Concomitant]
     Dosage: 1%, UNIT DOSE TOPICALLY TO SCAR ON BACK UP TO THREE TIMES A DAY
     Route: 064
  14. PYRIDOXINE [Concomitant]
     Indication: NAUSEA
     Dosage: 50 MG, 1.5 TABLET EVERY DAY
     Route: 064
  15. NYQUIL [Concomitant]
     Indication: NASOPHARYNGITIS
     Dosage: UNK
     Route: 064
  16. DAYQUIL [Concomitant]
     Indication: NASOPHARYNGITIS
     Dosage: UNK
     Route: 064
  17. BENADRYL [Concomitant]
     Indication: HYPERSENSITIVITY
     Dosage: UNK
     Route: 064
  18. ASPIRIN [Concomitant]
     Indication: PAIN
     Dosage: UNK
     Route: 064
  19. ASPIRIN [Concomitant]
     Indication: PAIN
  20. TYLENOL [Concomitant]
     Indication: PAIN
     Dosage: UNK
     Route: 064
  21. TYLENOL [Concomitant]
     Indication: PAIN
  22. MIDOL [Concomitant]
     Indication: PAIN
     Dosage: UNK
     Route: 064
  23. MIDOL [Concomitant]
     Indication: PAIN

REACTIONS (23)
  - Foetal exposure during pregnancy [Unknown]
  - Heart disease congenital [Unknown]
  - Transposition of the great vessels [Unknown]
  - Atrial septal defect [Unknown]
  - Ventricular septal defect [Unknown]
  - Patent ductus arteriosus [Unknown]
  - Bundle branch block [Unknown]
  - Fallot^s tetralogy [Unknown]
  - Cleft palate [Unknown]
  - Congenital jaw malformation [Unknown]
  - Apnoea neonatal [Unknown]
  - Bradycardia neonatal [Unknown]
  - Jaundice neonatal [Unknown]
  - Ileus paralytic [Unknown]
  - Breast enlargement [Unknown]
  - Cardiac failure congestive [Unknown]
  - Mitral valve incompetence [Unknown]
  - Tricuspid valve incompetence [Unknown]
  - Left atrial dilatation [Unknown]
  - Dilatation ventricular [Unknown]
  - Convulsion [Unknown]
  - Speech disorder [Unknown]
  - Developmental delay [Unknown]
